FAERS Safety Report 17945821 (Version 1)
Quarter: 2020Q2

REPORT INFORMATION
  Report Type: Other
  Country: DE (occurrence: DE)
  Receive Date: 20200626
  Receipt Date: 20200626
  Transmission Date: 20200714
  Serious: Yes (Hospitalization, Other)
  Sender: FDA-Public Use
  Company Number: DE-LUPIN PHARMACEUTICALS INC.-2020-02971

PATIENT
  Age: 1 Day
  Sex: Male
  Weight: 3.28 kg

DRUGS (5)
  1. DRONABINOL. [Suspect]
     Active Substance: DRONABINOL
     Dosage: DOSAGE REDUCTION TO 5/D
     Route: 064
     Dates: end: 20200211
  2. AMITRIPTYLINE [Suspect]
     Active Substance: AMITRIPTYLINE
     Indication: PAIN
     Dosage: 25 MILLIGRAM, QD (0-37 GESTATIONAL WEEK)
     Route: 064
     Dates: start: 20190528, end: 20200211
  3. OXYCODONE HYDROCHLORIDE. [Suspect]
     Active Substance: OXYCODONE HYDROCHLORIDE
     Indication: PAIN
     Dosage: 180 MILLIGRAM, QD (VARYING DOSAGE: 4X20MG/D TO 3X60MG/D AND 0-37 GESTATIONAL WEEK)
     Route: 064
     Dates: start: 20190528, end: 20200211
  4. ZOPICLONE [Concomitant]
     Active Substance: ZOPICLONE
     Indication: SLEEP DISORDER
     Dosage: 7.5 MILLIGRAM, QD (AT LEAST UNTIL 6TH MONTHS, DETAILS UNKNOWN )
     Route: 064
  5. DRONABINOL. [Suspect]
     Active Substance: DRONABINOL
     Indication: PAIN
     Dosage: UNK (2X13 DROPS, DOSAGE REDUCTION TO 5/D AND 0-37 GW)
     Route: 064
     Dates: start: 20190528

REACTIONS (8)
  - Pneumothorax [Recovered/Resolved]
  - Neonatal infection [Recovered/Resolved]
  - Foetal exposure during pregnancy [Unknown]
  - Tachypnoea [Recovered/Resolved]
  - Drug withdrawal syndrome neonatal [Recovered/Resolved]
  - Hypotonia neonatal [Recovered/Resolved]
  - Dyspnoea [Recovered/Resolved]
  - Respiratory disorder neonatal [Recovered/Resolved]

NARRATIVE: CASE EVENT DATE: 20200211
